FAERS Safety Report 8048269-9 (Version None)
Quarter: 2012Q1

REPORT INFORMATION
  Report Type: 
  Country: None (occurrence: None)
  Receive Date: 20120110
  Receipt Date: 20120104
  Transmission Date: 20120608
  Serious: Yes (Death)
  Sender: FDA-Public Use
  Company Number: DSA_48727_2012

PATIENT
  Sex: Male

DRUGS (4)
  1. ALENDRONATE SODIUM [Concomitant]
  2. ASCORBIC ACID [Concomitant]
  3. TAMSULOSIN HCL [Concomitant]
  4. XENAZINE [Suspect]
     Indication: PRODUCT USED FOR UNKNOWN INDICATION
     Dosage: (12.5 MG, [TOTAL DAILY DOSE: 12.5 MG EVERY MORNING, 12.5 MG AT NOON, AND 25 MG IN THE EVENING] ORAL)
     Route: 048
     Dates: end: 20111213

REACTIONS (1)
  - DEATH [None]
